FAERS Safety Report 14751043 (Version 2)
Quarter: 2019Q4

REPORT INFORMATION
  Report Type: Spontaneous
  Country: AU (occurrence: AU)
  Receive Date: 20180412
  Receipt Date: 20191025
  Transmission Date: 20200122
  Serious: Yes (Hospitalization, Other)
  Sender: FDA-Public Use
  Company Number: AU-ASTRAZENECA-2018SE45003

PATIENT
  Age: 16197 Day
  Sex: Male

DRUGS (6)
  1. ASTHMA SPRAY [Concomitant]
  2. CRESTOR [Suspect]
     Active Substance: ROSUVASTATIN CALCIUM
     Route: 048
     Dates: start: 201608
  3. NAPROXEN. [Concomitant]
     Active Substance: NAPROXEN
  4. PANADOL [Concomitant]
     Active Substance: ACETAMINOPHEN
  5. TEMAZEPAM. [Concomitant]
     Active Substance: TEMAZEPAM
  6. DIAZEPAM. [Concomitant]
     Active Substance: DIAZEPAM

REACTIONS (19)
  - Joint stiffness [Unknown]
  - Bowel movement irregularity [Not Recovered/Not Resolved]
  - Diarrhoea [Unknown]
  - Dyspepsia [Unknown]
  - Contusion [Unknown]
  - Musculoskeletal stiffness [Unknown]
  - Blood pressure increased [Unknown]
  - Blood urine present [Unknown]
  - Joint swelling [Unknown]
  - Fall [Unknown]
  - Constipation [Unknown]
  - Abdominal discomfort [Unknown]
  - Oedema [Unknown]
  - Myalgia [Not Recovered/Not Resolved]
  - Sticky skin [Unknown]
  - Syncope [Unknown]
  - Protein urine [Unknown]
  - Diabetes mellitus [Not Recovered/Not Resolved]
  - Hyperhidrosis [Not Recovered/Not Resolved]

NARRATIVE: CASE EVENT DATE: 20161224
